FAERS Safety Report 8486885-0 (Version None)
Quarter: 2012Q3

REPORT INFORMATION
  Report Type: 
  Country: None (occurrence: None)
  Receive Date: 20120704
  Receipt Date: 20120626
  Transmission Date: 20120928
  Serious: Yes (Hospitalization, Other)
  Sender: FDA-Public Use
  Company Number: US-ASTRAZENECA-2011SE32269

PATIENT
  Age: 59 Year
  Sex: Female
  Weight: 67.1 kg

DRUGS (25)
  1. FOSAMAX [Concomitant]
     Dosage: 70 MG PER WEEK
     Dates: start: 20060925
  2. CALCIUM CARBONATE [Concomitant]
  3. MEDROL [Concomitant]
     Indication: OEDEMA PERIPHERAL
     Dates: start: 20030101
  4. LASIX [Concomitant]
     Dates: start: 20060925
  5. SYNTHROID [Concomitant]
     Dates: start: 20060925
  6. ACTIGALL [Concomitant]
     Dates: start: 20060925
  7. ZETIA [Concomitant]
     Dates: start: 20060925
  8. CLONAZEPAM [Concomitant]
     Dates: start: 20080317
  9. LASIX [Concomitant]
     Dates: start: 20080317
  10. ACTIGALL [Concomitant]
     Dates: start: 20080317
  11. PREMARIN [Concomitant]
     Dates: start: 20060925
  12. LEXAPRO [Concomitant]
     Dates: start: 20060925
  13. MILK OF MAGNESIA TAB [Concomitant]
  14. AMITRIPTYLINE HCL [Concomitant]
     Dates: start: 20080317
  15. SPIRONOLACTONE [Concomitant]
     Dates: start: 20060925
  16. AMITRIPTYLINE HCL [Concomitant]
     Dates: start: 20060925
  17. AMITRIPTYLINE HCL [Concomitant]
     Dates: start: 20060925
  18. CLONAZEPAM [Concomitant]
     Dosage: 0.5 MG 1 HS AND PRN
     Dates: start: 20060925
  19. SPIRONOLACTONE [Concomitant]
     Dates: start: 20080317
  20. NEXIUM [Suspect]
     Indication: GASTROOESOPHAGEAL REFLUX DISEASE
     Route: 048
     Dates: start: 20020101, end: 20090101
  21. NEXIUM [Suspect]
     Dosage: ONCE A DAY EVERYDAY
     Route: 048
     Dates: start: 20040101, end: 20080101
  22. NEXIUM [Suspect]
     Route: 048
     Dates: start: 20060925
  23. SYNTHROID [Concomitant]
     Dates: start: 20080317
  24. MEDROL [Concomitant]
     Indication: JOINT SWELLING
     Dates: start: 20030101
  25. ESTRACE [Concomitant]
     Dates: start: 20080317

REACTIONS (9)
  - OSTEOPOROSIS [None]
  - FALL [None]
  - LOWER LIMB FRACTURE [None]
  - OEDEMA PERIPHERAL [None]
  - ANKLE FRACTURE [None]
  - PAIN [None]
  - CELLULITIS [None]
  - OSTEOARTHRITIS [None]
  - DEPRESSION [None]
